FAERS Safety Report 7374002-X (Version None)
Quarter: 2011Q1

REPORT INFORMATION
  Report Type: 
  Country: None (occurrence: None)
  Receive Date: 20110325
  Receipt Date: 20110323
  Transmission Date: 20110831
  Serious: No
  Sender: FDA-Public Use
  Company Number: US-PFIZER INC-2011064484

PATIENT
  Sex: Male
  Weight: 71.655 kg

DRUGS (3)
  1. MOVE FREE [Concomitant]
     Indication: ARTHRITIS
     Dosage: UNK
  2. METFORMIN HCL/PIOGLITAZONE HCL [Concomitant]
     Indication: DIABETES MELLITUS
     Dosage: UNK
     Route: 048
  3. LIPITOR [Suspect]
     Indication: BLOOD CHOLESTEROL INCREASED
     Dosage: 10 MG, UNK
     Route: 048

REACTIONS (5)
  - LOCAL SWELLING [None]
  - TENDON INJURY [None]
  - MYALGIA [None]
  - MUSCLE SWELLING [None]
  - JOINT SWELLING [None]
